FAERS Safety Report 10239913 (Version 1)
Quarter: 2014Q2

REPORT INFORMATION
  Report Type: Spontaneous
  Country: US (occurrence: US)
  Receive Date: 20140616
  Receipt Date: 20140616
  Transmission Date: 20141212
  Serious: No
  Sender: FDA-Public Use
  Company Number: US-GILEAD-2014-0105110

PATIENT
  Sex: Male

DRUGS (3)
  1. COMPLERA [Suspect]
     Indication: PRODUCT USED FOR UNKNOWN INDICATION
     Dosage: UNK
     Route: 065
     Dates: start: 2013, end: 201403
  2. ATRIPLA [Suspect]
     Indication: PRODUCT USED FOR UNKNOWN INDICATION
     Dosage: UNK
     Route: 065
     Dates: end: 2013
  3. BACTRIM [Concomitant]
     Indication: PROPHYLAXIS

REACTIONS (3)
  - CD4 lymphocytes decreased [Unknown]
  - Nervous system disorder [Unknown]
  - Neutrophil count decreased [Unknown]
